FAERS Safety Report 5963220-0 (Version None)
Quarter: 2008Q4

REPORT INFORMATION
  Report Type: 
  Country: None (occurrence: None)
  Receive Date: 20081124
  Receipt Date: 20081117
  Transmission Date: 20090506
  Serious: Yes (Other)
  Sender: FDA-Public Use
  Company Number: FR-JNJFOC-20080903706

PATIENT
  Sex: Male
  Weight: 113 kg

DRUGS (5)
  1. RISPERDAL CONSTA [Suspect]
     Route: 030
  2. RISPERDAL CONSTA [Suspect]
     Indication: PSYCHOTIC DISORDER
     Route: 030
  3. TEMESTA [Concomitant]
     Route: 048
  4. IMOVANE [Concomitant]
     Route: 048
  5. LEPTICUR [Concomitant]
     Route: 048

REACTIONS (2)
  - OVERDOSE [None]
  - PSORIASIS [None]
